FAERS Safety Report 18486269 (Version 2)
Quarter: 2020Q4

REPORT INFORMATION
  Report Type: Spontaneous
  Country: PL (occurrence: PL)
  Receive Date: 20201110
  Receipt Date: 20201117
  Transmission Date: 20210114
  Serious: Yes (Other)
  Sender: FDA-Public Use
  Company Number: PL-MYLANLABS-2020M1093394

PATIENT
  Age: 58 Year
  Sex: Female

DRUGS (2)
  1. FLUOROURACIL. [Suspect]
     Active Substance: FLUOROURACIL
     Indication: RECTAL ADENOCARCINOMA
     Dosage: 325 MG/M2
     Route: 065
  2. CISPLATIN. [Suspect]
     Active Substance: CISPLATIN
     Indication: RECTAL ADENOCARCINOMA
     Dosage: 40 MG/M2
     Route: 065

REACTIONS (4)
  - Neutropenia [Unknown]
  - Product use in unapproved indication [Unknown]
  - Off label use [Unknown]
  - Anaemia [Unknown]
